FAERS Safety Report 10393405 (Version 3)
Quarter: 2014Q3

REPORT INFORMATION
  Report Type: Spontaneous
  Country: BR (occurrence: BR)
  Receive Date: 20140819
  Receipt Date: 20140903
  Transmission Date: 20150326
  Serious: Yes (Other)
  Sender: FDA-Public Use
  Company Number: PHHY2014BR084530

PATIENT
  Age: 20 Year
  Sex: Male
  Weight: 40 kg

DRUGS (8)
  1. TRILEPTAL [Suspect]
     Active Substance: OXCARBAZEPINE
     Indication: CONVULSION
     Dosage: UNK UKN, UNK
     Route: 048
  2. TRILEPTAL [Suspect]
     Active Substance: OXCARBAZEPINE
     Indication: OFF LABEL USE
  3. TOPIRAMATE. [Concomitant]
     Active Substance: TOPIRAMATE
     Indication: CEREBROVASCULAR ACCIDENT
  4. TRILEPTAL [Suspect]
     Active Substance: OXCARBAZEPINE
     Indication: CEREBROVASCULAR ACCIDENT
     Dosage: 60 MG, Q12H (7.5ML)
     Dates: start: 201310
  5. TOPIRAMATE. [Concomitant]
     Active Substance: TOPIRAMATE
     Indication: CEREBROVASCULAR ACCIDENT
     Dosage: 4 DF, DAILY
  6. CLOBAZAM [Concomitant]
     Active Substance: CLOBAZAM
     Indication: CEREBROVASCULAR ACCIDENT
     Dosage: 2 DF, DAILY
  7. TRILEPTAL [Suspect]
     Active Substance: OXCARBAZEPINE
     Indication: CEREBROVASCULAR ACCIDENT
  8. CLOBAZAM [Concomitant]
     Active Substance: CLOBAZAM
     Indication: CEREBROVASCULAR ACCIDENT

REACTIONS (2)
  - Aspiration [Recovered/Resolved]
  - Dysphagia [Not Recovered/Not Resolved]
